FAERS Safety Report 6710690-6 (Version None)
Quarter: 2010Q2

REPORT INFORMATION
  Report Type: 
  Country: None (occurrence: None)
  Receive Date: 20100504
  Receipt Date: 20100504
  Transmission Date: 20101027
  Serious: Yes (Other)
  Sender: FDA-Public Use
  Company Number: None

PATIENT
  Sex: Male
  Weight: 9.0719 kg

DRUGS (1)
  1. TYLENOL INFANT'S DROPS 80 MG PER .8ML MCNEIL CONSUMER HEALTHCARE [Suspect]
     Indication: PYREXIA
     Dosage: .4 ML 2 TIMES A DAY PO
     Route: 048
     Dates: start: 20100425, end: 20100429

REACTIONS (3)
  - DYSPNOEA [None]
  - LUNG INFECTION [None]
  - PRODUCT QUALITY ISSUE [None]
